FAERS Safety Report 9736772 (Version 1)
Quarter: 2013Q4

REPORT INFORMATION
  Report Type: Spontaneous
  Country: US (occurrence: US)
  Receive Date: 20131206
  Receipt Date: 20131206
  Transmission Date: 20140711
  Serious: No
  Sender: FDA-Public Use
  Company Number: US-BIOGENIDEC-2013BI092867

PATIENT
  Age: 45 Year
  Sex: Female
  Weight: 59 kg

DRUGS (4)
  1. TECFIDERA [Suspect]
     Indication: MULTIPLE SCLEROSIS
     Route: 048
     Dates: start: 20130829
  2. WELLBUTRIN [Concomitant]
  3. LUNESTA [Concomitant]
  4. VALERIAN ROOT [Concomitant]

REACTIONS (1)
  - Flushing [Recovered/Resolved]
